FAERS Safety Report 17844601 (Version 1)
Quarter: 2020Q2

REPORT INFORMATION
  Report Type: Spontaneous
  Country: PT (occurrence: PT)
  Receive Date: 20200601
  Receipt Date: 20200601
  Transmission Date: 20200714
  Serious: Yes (Other)
  Sender: FDA-Public Use
  Company Number: PT-ROCHE-2610964

PATIENT

DRUGS (1)
  1. AVASTIN [Suspect]
     Active Substance: BEVACIZUMAB
     Indication: COLORECTAL CANCER
     Dosage: RECEIVED 11 CYCLES
     Route: 065

REACTIONS (4)
  - Device dislocation [Unknown]
  - Oedema [Unknown]
  - Injection site extravasation [Unknown]
  - Needle issue [Unknown]
